FAERS Safety Report 14619893 (Version 1)
Quarter: 2018Q1

REPORT INFORMATION
  Report Type: Spontaneous
  Country: JP (occurrence: JP)
  Receive Date: 20180309
  Receipt Date: 20180309
  Transmission Date: 20180509
  Serious: Yes (Hospitalization)
  Sender: FDA-Public Use
  Company Number: JP-PFIZER INC-2018096004

PATIENT
  Age: 83 Year
  Sex: Female

DRUGS (2)
  1. RIMATIL [Suspect]
     Active Substance: BUCILLAMINE
     Indication: RHEUMATOID ARTHRITIS
     Dosage: UNK
     Route: 048
     Dates: start: 201712, end: 201803
  2. RHEUMATREX [Suspect]
     Active Substance: METHOTREXATE SODIUM
     Indication: RHEUMATOID ARTHRITIS
     Dosage: UNK
     Route: 048
     Dates: start: 201802, end: 201803

REACTIONS (1)
  - Metastases to lung [Not Recovered/Not Resolved]

NARRATIVE: CASE EVENT DATE: 20180306
